FAERS Safety Report 9779612 (Version 2)
Quarter: 2014Q1

REPORT INFORMATION
  Report Type: Spontaneous
  Country: IT (occurrence: IT)
  Receive Date: 20131223
  Receipt Date: 20140116
  Transmission Date: 20141002
  Serious: Yes (Hospitalization)
  Sender: FDA-Public Use
  Company Number: IT-FRI-1000052404

PATIENT
  Age: 74 Year
  Sex: Female

DRUGS (3)
  1. FOSFOMYCIN [Suspect]
     Indication: CYSTITIS
     Dosage: 3 GRAM
     Route: 048
     Dates: start: 20130925, end: 20131004
  2. LEVOXACIN [Suspect]
     Indication: CYSTITIS
     Dosage: 1 GRAM
     Route: 048
     Dates: start: 20130925, end: 20131004
  3. OMEPRAZOLE [Concomitant]

REACTIONS (3)
  - Overdose [Recovered/Resolved]
  - Hypokalaemia [Recovered/Resolved]
  - Clostridium difficile colitis [Recovered/Resolved]
